FAERS Safety Report 23482455 (Version 3)
Quarter: 2024Q1

REPORT INFORMATION
  Report Type: Spontaneous
  Country: DE (occurrence: DE)
  Receive Date: 20240205
  Receipt Date: 20240229
  Transmission Date: 20240410
  Serious: Yes (Other)
  Sender: FDA-Public Use
  Company Number: DE-002147023-NVSC2024DE020793

PATIENT
  Age: 23 Year
  Sex: Male
  Weight: 90 kg

DRUGS (15)
  1. SECUKINUMAB [Suspect]
     Active Substance: SECUKINUMAB
     Indication: Pyogenic sterile arthritis pyoderma gangrenosum and acne syndrome
     Dosage: UNK (UP TO 150 MG)
     Route: 058
     Dates: start: 201709
  2. SECUKINUMAB [Suspect]
     Active Substance: SECUKINUMAB
     Indication: Acne cystic
     Dosage: UNK (UP TO 150 MG)
     Route: 058
     Dates: end: 202002
  3. SECUKINUMAB [Suspect]
     Active Substance: SECUKINUMAB
     Indication: Abscess sterile
  4. ILARIS [Suspect]
     Active Substance: CANAKINUMAB
     Indication: Arthritis bacterial
     Dosage: 300 MG, Q2W
     Route: 058
     Dates: start: 202002
  5. ILARIS [Suspect]
     Active Substance: CANAKINUMAB
     Indication: Pyoderma gangrenosum
  6. ILARIS [Suspect]
     Active Substance: CANAKINUMAB
     Indication: Pyogenic sterile arthritis pyoderma gangrenosum and acne syndrome
  7. ILARIS [Suspect]
     Active Substance: CANAKINUMAB
     Indication: Acne cystic
  8. ILARIS [Suspect]
     Active Substance: CANAKINUMAB
     Indication: Abscess sterile
  9. ILARIS [Suspect]
     Active Substance: CANAKINUMAB
     Indication: Hidradenitis
  10. ANAKINRA [Concomitant]
     Active Substance: ANAKINRA
     Indication: Pyogenic sterile arthritis pyoderma gangrenosum and acne syndrome
     Dosage: UNK, QD (UP TO 300 MG)
     Route: 065
     Dates: start: 201709
  11. ANAKINRA [Concomitant]
     Active Substance: ANAKINRA
     Indication: Acne cystic
     Dosage: UNK, QD
     Route: 065
     Dates: end: 202002
  12. ANAKINRA [Concomitant]
     Active Substance: ANAKINRA
     Indication: Abscess sterile
  13. ISOTRETINOIN [Concomitant]
     Active Substance: ISOTRETINOIN
     Indication: Pyogenic sterile arthritis pyoderma gangrenosum and acne syndrome
     Dosage: UNK
     Route: 065
     Dates: start: 201711, end: 202104
  14. ISOTRETINOIN [Concomitant]
     Active Substance: ISOTRETINOIN
     Indication: Acne cystic
  15. ISOTRETINOIN [Concomitant]
     Active Substance: ISOTRETINOIN
     Indication: Abscess sterile

REACTIONS (7)
  - Hidradenitis [Recovered/Resolved with Sequelae]
  - Pyoderma gangrenosum [Not Recovered/Not Resolved]
  - Pain in extremity [Not Recovered/Not Resolved]
  - Skin lesion [Not Recovered/Not Resolved]
  - Interleukin level increased [Not Recovered/Not Resolved]
  - Off label use [Recovered/Resolved]
  - Off label use [Not Recovered/Not Resolved]

NARRATIVE: CASE EVENT DATE: 20170901
